FAERS Safety Report 22033689 (Version 1)
Quarter: 2023Q1

REPORT INFORMATION
  Report Type: Spontaneous
  Country: IT (occurrence: IT)
  Receive Date: 20230224
  Receipt Date: 20230224
  Transmission Date: 20230418
  Serious: Yes (Life-Threatening, Other)
  Sender: FDA-Public Use
  Company Number: IT-009507513-2302ITA007233

PATIENT
  Age: 69 Year
  Sex: Female

DRUGS (1)
  1. PEMBROLIZUMAB [Suspect]
     Active Substance: PEMBROLIZUMAB
     Indication: Lung adenocarcinoma stage IV
     Dosage: UNK

REACTIONS (4)
  - Hypereosinophilic syndrome [Recovered/Resolved]
  - Cerebrovascular accident [Unknown]
  - Sepsis [Unknown]
  - Thrombocytopenia [Recovered/Resolved]
